FAERS Safety Report 19724358 (Version 3)
Quarter: 2021Q4

REPORT INFORMATION
  Report Type: Spontaneous
  Country: US (occurrence: US)
  Receive Date: 20210819
  Receipt Date: 20211012
  Transmission Date: 20220304
  Serious: No
  Sender: FDA-Public Use
  Company Number: US-ORGANON-O2108USA001150

PATIENT
  Age: 20 Year
  Sex: Female
  Weight: 69.84 kg

DRUGS (2)
  1. NEXPLANON [Suspect]
     Active Substance: ETONOGESTREL
     Dosage: 1 IMPLANT, LEFT ARM
     Dates: start: 20210810, end: 20210810
  2. NEXPLANON [Suspect]
     Active Substance: ETONOGESTREL
     Dosage: 1 IMPLANT
     Dates: end: 20210802

REACTIONS (3)
  - Complication of device insertion [Recovered/Resolved]
  - Implant site fibrosis [Unknown]
  - Product quality issue [Unknown]

NARRATIVE: CASE EVENT DATE: 20210810
